FAERS Safety Report 6159219-4 (Version None)
Quarter: 2009Q2

REPORT INFORMATION
  Report Type: 
  Country: None (occurrence: None)
  Receive Date: 20090417
  Receipt Date: 20090408
  Transmission Date: 20091009
  Serious: Yes (Other)
  Sender: FDA-Public Use
  Company Number: CL-PFIZER INC-2009195980

PATIENT

DRUGS (2)
  1. CELECOXIB [Suspect]
  2. HYDROXYCHLOROQUINE SULFATE [Concomitant]

REACTIONS (1)
  - HEPATITIS CHOLESTATIC [None]
